FAERS Safety Report 5304629-8 (Version None)
Quarter: 2007Q2

REPORT INFORMATION
  Report Type: 
  Country: None (occurrence: None)
  Receive Date: 20070423
  Receipt Date: 20070412
  Transmission Date: 20071010
  Serious: Yes (Other)
  Sender: FDA-Public Use
  Company Number: J200701746

PATIENT
  Age: 76 Year
  Sex: Male

DRUGS (2)
  1. AMOXICILLIN TRIHYDRATE [Suspect]
     Indication: CYSTITIS
     Route: 048
     Dates: start: 20070308, end: 20070329
  2. WARFARIN POTASSIUM [Concomitant]

REACTIONS (1)
  - PROTHROMBIN TIME PROLONGED [None]
